FAERS Safety Report 18247824 (Version 2)
Quarter: 2020Q3

REPORT INFORMATION
  Report Type: Spontaneous
  Country: US (occurrence: US)
  Receive Date: 20200909
  Receipt Date: 20200914
  Transmission Date: 20201103
  Serious: Yes (Life-Threatening, Hospitalization, Other)
  Sender: FDA-Public Use
  Company Number: US-PFIZER INC-2020343339

PATIENT
  Age: 55 Year
  Sex: Female

DRUGS (8)
  1. DIPHENHYDRAMINE. [Concomitant]
     Active Substance: DIPHENHYDRAMINE
     Indication: ANAPHYLACTIC REACTION
     Dosage: 50 MG
     Route: 042
  2. EPINEPHRINE. [Suspect]
     Active Substance: EPINEPHRINE
     Indication: ANAPHYLACTIC REACTION
     Dosage: 0.2 MG, OR 0.2 ML OF A DILUTION 1:1000 WAS INJECTED)
     Route: 058
  3. EPINEPHRINE. [Suspect]
     Active Substance: EPINEPHRINE
     Dosage: 0.2 MG, (20 MINUTES LATER)
     Route: 058
  4. DOPAMINE [Concomitant]
     Active Substance: DOPAMINE HYDROCHLORIDE
     Indication: ANAPHYLACTIC REACTION
     Dosage: UNK
     Route: 042
  5. EPINEPHRINE. [Suspect]
     Active Substance: EPINEPHRINE
     Dosage: 0.3 MG, (40 MINUTES LATER)
     Route: 058
  6. DIPHENHYDRAMINE. [Concomitant]
     Active Substance: DIPHENHYDRAMINE
     Dosage: 25 MG
  7. NORMAL SALINE [Concomitant]
     Active Substance: SODIUM CHLORIDE
     Indication: ANAPHYLACTIC REACTION
     Dosage: 500 ML
     Route: 040
  8. OXYGEN. [Concomitant]
     Active Substance: OXYGEN
     Dosage: UNK

REACTIONS (1)
  - Heart injury [Recovered/Resolved]
